FAERS Safety Report 4325990-7 (Version None)
Quarter: 2004Q1

REPORT INFORMATION
  Report Type: 
  Country: None (occurrence: None)
  Receive Date: 20040329
  Receipt Date: 20040317
  Transmission Date: 20041129
  Serious: Yes (Life-Threatening)
  Sender: FDA-Public Use
  Company Number: JP-GLAXOSMITHKLINE-B0327233A

PATIENT
  Age: 47 Year
  Sex: Female

DRUGS (3)
  1. ZOVIRAX [Suspect]
     Indication: HERPES ZOSTER
     Route: 042
     Dates: start: 20040311, end: 20040312
  2. CEFAZOLIN [Suspect]
  3. DIALYSIS [Concomitant]

REACTIONS (2)
  - HEPATITIS FULMINANT [None]
  - SHOCK [None]
